FAERS Safety Report 15531898 (Version 3)
Quarter: 2018Q4

REPORT INFORMATION
  Report Type: Spontaneous
  Country: GB (occurrence: GB)
  Receive Date: 20181019
  Receipt Date: 20181129
  Transmission Date: 20190205
  Serious: Yes (Other)
  Sender: FDA-Public Use
  Company Number: GB-BIOGEN-2018BI00647384

PATIENT
  Age: 48 Year
  Sex: Female

DRUGS (1)
  1. PLEGRIDY [Suspect]
     Active Substance: PEGINTERFERON BETA-1A
     Indication: RELAPSING-REMITTING MULTIPLE SCLEROSIS
     Route: 058
     Dates: start: 20170425, end: 20181012

REACTIONS (8)
  - Limb mass [Unknown]
  - Injection site erythema [Recovered/Resolved]
  - Feeling hot [Unknown]
  - Drug ineffective [Unknown]
  - Urinary tract infection [Recovered/Resolved]
  - Nasopharyngitis [Unknown]
  - Diabetes mellitus [Unknown]
  - Erythema [Unknown]

NARRATIVE: CASE EVENT DATE: 201802
